FAERS Safety Report 9950665 (Version 2)
Quarter: 2014Q1

REPORT INFORMATION
  Report Type: Report from Study
  Country: US (occurrence: US)
  Receive Date: 20140304
  Receipt Date: 20140304
  Transmission Date: 20141002
  Serious: Yes (Other)
  Sender: FDA-Public Use
  Company Number: US-ABBVIE-13P-163-1054173-00

PATIENT
  Age: 22 Year
  Sex: Male

DRUGS (5)
  1. HUMIRA [Suspect]
     Indication: CROHN^S DISEASE
     Dates: start: 20130107
  2. CIPRO [Concomitant]
     Indication: INFECTION
  3. FLAGYL [Concomitant]
     Indication: INFECTION
  4. IMURAN [Concomitant]
     Indication: COLITIS ULCERATIVE
  5. UNKNOWN MEDICATION TURNS URINE ORANGE [Concomitant]
     Indication: BLADDER PAIN

REACTIONS (3)
  - Abscess [Unknown]
  - Incorrect dose administered [Unknown]
  - Device malfunction [Unknown]
